FAERS Safety Report 23467187 (Version 1)
Quarter: 2024Q1

REPORT INFORMATION
  Report Type: Spontaneous
  Country: RU (occurrence: RU)
  Receive Date: 20240201
  Receipt Date: 20240201
  Transmission Date: 20240410
  Serious: Yes (Hospitalization)
  Sender: FDA-Public Use
  Company Number: RU-SANDOZ-SDZ2024RU009818

PATIENT
  Sex: Female
  Weight: 55 kg

DRUGS (1)
  1. AMOXICILLIN\CLAVULANATE POTASSIUM [Suspect]
     Active Substance: AMOXICILLIN\CLAVULANATE POTASSIUM
     Indication: Product used for unknown indication
     Dosage: UNK
     Route: 048
     Dates: start: 20240105, end: 20240108

REACTIONS (1)
  - Purpura [Recovering/Resolving]

NARRATIVE: CASE EVENT DATE: 20240113
